FAERS Safety Report 12598746 (Version 1)
Quarter: 2016Q3

REPORT INFORMATION
  Report Type: Spontaneous
  Country: FR (occurrence: FR)
  Receive Date: 20160726
  Receipt Date: 20160726
  Transmission Date: 20161109
  Serious: Yes (Death, Life-Threatening)
  Sender: FDA-Public Use
  Company Number: FR-ASTRAZENECA-2016SE79693

PATIENT
  Age: 90 Year
  Sex: Female

DRUGS (8)
  1. ESOMEPRAZOLE [Concomitant]
     Active Substance: ESOMEPRAZOLE
  2. SIMVASTATINE [Concomitant]
     Active Substance: SIMVASTATIN
  3. ASPIRIN PROTECT [Concomitant]
     Active Substance: ASPIRIN
  4. DIAMICRON [Concomitant]
     Active Substance: GLICLAZIDE
  5. ATENOLOL. [Concomitant]
     Active Substance: ATENOLOL
  6. CANDESARTAN [Concomitant]
     Active Substance: CANDESARTAN
  7. ONGLYZA [Suspect]
     Active Substance: SAXAGLIPTIN HYDROCHLORIDE
     Indication: DIABETES MELLITUS
     Route: 048
     Dates: start: 2012, end: 201512
  8. LEVOCETIRIZINE [Concomitant]
     Active Substance: LEVOCETIRIZINE

REACTIONS (2)
  - Pancreatic carcinoma metastatic [Fatal]
  - Metastases to liver [Unknown]

NARRATIVE: CASE EVENT DATE: 20151123
